FAERS Safety Report 6307960-2 (Version None)
Quarter: 2009Q3

REPORT INFORMATION
  Report Type: 
  Country: None (occurrence: None)
  Receive Date: 20090810
  Receipt Date: 20090729
  Transmission Date: 20100115
  Serious: Yes (Hospitalization)
  Sender: FDA-Public Use
  Company Number: 2008AL010503

PATIENT
  Age: 73 Year
  Sex: Male
  Weight: 103.8737 kg

DRUGS (51)
  1. DIGOXIN [Suspect]
     Indication: CARDIAC FAILURE CONGESTIVE
     Dosage: 0.25MG, DAILY, PO
     Route: 048
     Dates: start: 19970101, end: 20090509
  2. AMIODARONE HCL [Concomitant]
  3. LIPITOR [Concomitant]
  4. COREG [Concomitant]
  5. AVELOX [Concomitant]
  6. IMDUR [Concomitant]
  7. NIACIN [Concomitant]
  8. AVODART [Concomitant]
  9. LASIX [Concomitant]
  10. SPIRONOLACTONE [Concomitant]
  11. FOLIC ACID [Concomitant]
  12. LISINOPRIL [Concomitant]
  13. TOPROL-XL [Concomitant]
  14. PLAVIX [Concomitant]
  15. ASPIRIN [Concomitant]
  16. COUMADIN [Concomitant]
  17. NIACIN [Concomitant]
  18. DOXAZOSIN [Concomitant]
  19. KLOR-CON [Concomitant]
  20. LORAZEPAM [Concomitant]
  21. ACETAMINOPHEN AND HYDROCODONE BITARTRATE [Concomitant]
  22. LOVENOX [Concomitant]
  23. FERREX [Concomitant]
  24. SONATA [Concomitant]
  25. AMBIEN [Concomitant]
  26. CLOPIDOGREL [Concomitant]
  27. ISOSORBIDE [Concomitant]
  28. DOXYCYCL HYC [Concomitant]
  29. XODOL [Concomitant]
  30. PACERONE [Concomitant]
  31. TIZANIDINE HCL [Concomitant]
  32. GLYCOLAX [Concomitant]
  33. IMITREX [Concomitant]
  34. VIGAMOX [Concomitant]
  35. FLUTICASONE [Concomitant]
  36. AMOXICILLIN [Concomitant]
  37. PREDNISONE [Concomitant]
  38. SPIRIVA [Concomitant]
  39. TRAZODONE HCL [Concomitant]
  40. PANTOPRAZOLE SODIUM [Concomitant]
  41. CARVEDILOL [Concomitant]
  42. CARDIZEM [Concomitant]
  43. NIASPAN [Concomitant]
  44. CEPHALEXIN [Concomitant]
  45. OXYCODONE [Concomitant]
  46. EUCERIN [Concomitant]
  47. LEVAQUIN [Concomitant]
  48. BENZONATATE [Concomitant]
  49. PROVENTIL-HFA [Concomitant]
  50. METOLAZONE [Concomitant]
  51. . [Concomitant]

REACTIONS (26)
  - ANHEDONIA [None]
  - ANXIETY [None]
  - ASTHENIA [None]
  - ATRIAL FIBRILLATION [None]
  - CARDIAC FAILURE CONGESTIVE [None]
  - CHRONIC OBSTRUCTIVE PULMONARY DISEASE [None]
  - CONDITION AGGRAVATED [None]
  - CORONARY ARTERY DISEASE [None]
  - DIZZINESS [None]
  - DYSLIPIDAEMIA [None]
  - ECONOMIC PROBLEM [None]
  - EMOTIONAL DISTRESS [None]
  - HYPERTENSION [None]
  - INSOMNIA [None]
  - MULTIPLE INJURIES [None]
  - NAUSEA [None]
  - OROPHARYNGEAL PAIN [None]
  - PNEUMONIA [None]
  - RENAL FAILURE ACUTE [None]
  - RESPIRATORY TRACT INFECTION [None]
  - RHINORRHOEA [None]
  - SLEEP APNOEA SYNDROME [None]
  - THERAPEUTIC AGENT TOXICITY [None]
  - VISION BLURRED [None]
  - VISUAL IMPAIRMENT [None]
  - WEIGHT DECREASED [None]
